FAERS Safety Report 20349958 (Version 1)
Quarter: 2022Q1

REPORT INFORMATION
  Report Type: Spontaneous
  Country: US (occurrence: None)
  Receive Date: 20220119
  Receipt Date: 20220119
  Transmission Date: 20220423
  Serious: Yes (Hospitalization)
  Sender: FDA-Public Use
  Company Number: None

PATIENT
  Sex: Male
  Weight: 67 kg

DRUGS (5)
  1. CARBOPLATIN [Suspect]
     Active Substance: CARBOPLATIN
     Dates: end: 20220105
  2. ETOPOSIDE [Suspect]
     Active Substance: ETOPOSIDE
     Dates: end: 20220105
  3. FILGRASTIM [Suspect]
     Active Substance: FILGRASTIM
     Dates: end: 20211213
  4. IFOSFAMIDE [Suspect]
     Active Substance: IFOSFAMIDE
     Dates: end: 20211218
  5. TAXOL [Suspect]
     Active Substance: PACLITAXEL
     Dates: end: 20211216

REACTIONS (4)
  - Febrile neutropenia [None]
  - Inflammation [None]
  - Colitis [None]
  - Enterocolitis [None]

NARRATIVE: CASE EVENT DATE: 20220115
